FAERS Safety Report 10352033 (Version 1)
Quarter: 2014Q3

REPORT INFORMATION
  Report Type: Spontaneous
  Country: US (occurrence: US)
  Receive Date: 20140730
  Receipt Date: 20140730
  Transmission Date: 20150326
  Serious: No
  Sender: FDA-Public Use
  Company Number: US-ABBVIE-14P-163-1216962-00

PATIENT
  Sex: Female
  Weight: 108.96 kg

DRUGS (1)
  1. SYNTHROID [Suspect]
     Active Substance: LEVOTHYROXINE SODIUM
     Indication: HYPOTHYROIDISM

REACTIONS (5)
  - Movement disorder [Unknown]
  - Hypersensitivity [Unknown]
  - Tremor [Unknown]
  - Muscle tightness [Unknown]
  - Pain [Unknown]
